FAERS Safety Report 4269738-3 (Version None)
Quarter: 2004Q1

REPORT INFORMATION
  Report Type: 
  Country: None (occurrence: None)
  Receive Date: 20040109
  Receipt Date: 20031230
  Transmission Date: 20041129
  Serious: Yes (Hospitalization)
  Sender: FDA-Public Use
  Company Number: 2003127426

PATIENT
  Age: 79 Year
  Sex: Male

DRUGS (9)
  1. GLUCOTROL [Suspect]
     Indication: ILL-DEFINED DISORDER
  2. TIKOSYN [Suspect]
     Indication: ILL-DEFINED DISORDER
  3. SOTALOL HYDROCHLORIDE [Suspect]
     Indication: ILL-DEFINED DISORDER
  4. TAMSULOSIN HYDROCHLORIDE [Suspect]
     Indication: ILL-DEFINED DISORDER
  5. LEVOTHYROXINE SODIUM [Suspect]
     Indication: ILL-DEFINED DISORDER
  6. CARVEDILOL [Concomitant]
  7. METFORMIN HCL [Concomitant]
  8. INSULIN GLARGINE [Concomitant]
  9. INSULIN ASPART [Concomitant]

REACTIONS (5)
  - BLOOD GLUCOSE FLUCTUATION [None]
  - CREATININE RENAL CLEARANCE DECREASED [None]
  - DRUG INTOLERANCE [None]
  - ELECTROCARDIOGRAM QT CORRECTED INTERVAL PROLONGED [None]
  - MEDICATION ERROR [None]
